FAERS Safety Report 6847550-6 (Version None)
Quarter: 2010Q3

REPORT INFORMATION
  Report Type: 
  Country: None (occurrence: None)
  Receive Date: 20100714
  Receipt Date: 20100630
  Transmission Date: 20110219
  Serious: Yes (Other)
  Sender: FDA-Public Use
  Company Number: AVE_01894_2010

PATIENT
  Sex: Female

DRUGS (3)
  1. CLONIDINE [Suspect]
     Indication: HYPERTENSION
     Dosage: (0.3 MG QD, VIA 1/WEEKLY PATCH TRANSDERMAL)
     Route: 062
     Dates: start: 20091101
  2. FUROSEMIDE [Concomitant]
  3. COREG [Concomitant]

REACTIONS (5)
  - APPLICATION SITE ERYTHEMA [None]
  - APPLICATION SITE PAIN [None]
  - BLOOD PRESSURE FLUCTUATION [None]
  - BLOOD PRESSURE INCREASED [None]
  - DRUG INEFFECTIVE [None]
